FAERS Safety Report 6651231-1 (Version None)
Quarter: 2010Q1

REPORT INFORMATION
  Report Type: 
  Country: None (occurrence: None)
  Receive Date: 20100309
  Receipt Date: 20091209
  Transmission Date: 20100710
  Serious: No
  Sender: FDA-Public Use
  Company Number: 2009SP040993

PATIENT
  Age: 64 Year
  Sex: Male

DRUGS (1)
  1. SAPHRIS [Suspect]
     Indication: SCHIZOPHRENIA
     Dates: start: 20091101, end: 20091201

REACTIONS (1)
  - THERAPEUTIC PRODUCT INEFFECTIVE [None]
